FAERS Safety Report 9691611 (Version 1)
Quarter: 2013Q4

REPORT INFORMATION
  Report Type: Spontaneous
  Country: JP (occurrence: JP)
  Receive Date: 20131115
  Receipt Date: 20131115
  Transmission Date: 20140711
  Serious: Yes (Death, Other)
  Sender: FDA-Public Use
  Company Number: PHHY2013JP130072

PATIENT
  Age: 27 Year
  Sex: Female

DRUGS (4)
  1. PACLITAXEL [Suspect]
     Indication: BREAST CANCER STAGE IV
     Dosage: 80 MG/M2, UNK
  2. CAPECITABINE [Suspect]
     Indication: BREAST CANCER STAGE IV
     Dates: start: 201107
  3. TRASTUZUMAB [Suspect]
     Indication: BREAST CANCER STAGE IV
     Dosage: 2 MG/KG, UNK
  4. LAPATINIB [Suspect]
     Indication: BREAST CANCER STAGE IV
     Dates: start: 201107

REACTIONS (4)
  - Respiratory failure [Fatal]
  - Lymphangiosis carcinomatosa [Fatal]
  - Breast inflammation [Unknown]
  - Malignant neoplasm progression [Unknown]
